FAERS Safety Report 18468196 (Version 1)
Quarter: 2020Q4

REPORT INFORMATION
  Report Type: Spontaneous
  Country: US (occurrence: US)
  Receive Date: 20201103
  Receipt Date: 20201103
  Transmission Date: 20210114
  Serious: No
  Sender: FDA-Public Use
  Company Number: None

PATIENT
  Age: 64 Year
  Sex: Female
  Weight: 83.91 kg

DRUGS (16)
  1. KCL [Concomitant]
     Active Substance: POTASSIUM CHLORIDE
  2. MELATONIN [Concomitant]
     Active Substance: MELATONIN
  3. CALCIUM [Concomitant]
     Active Substance: CALCIUM
  4. MONTELUKAST SODIUM 10MG TABLET [Suspect]
     Active Substance: MONTELUKAST SODIUM
     Indication: PROPHYLAXIS
     Dosage: ?          QUANTITY:1 DF DOSAGE FORM;?
     Route: 048
     Dates: end: 20200910
  5. TYLENOL [Concomitant]
     Active Substance: ACETAMINOPHEN
  6. BYSTOLIC [Concomitant]
     Active Substance: NEBIVOLOL HYDROCHLORIDE
  7. DEXILANT [Concomitant]
     Active Substance: DEXLANSOPRAZOLE
  8. DITROPAN XL [Concomitant]
     Active Substance: OXYBUTYNIN CHLORIDE
  9. ZARBEE COUGH AND MUCOUS COUGH SYRUP [Concomitant]
  10. CPAP [Concomitant]
     Active Substance: DEVICE
  11. PEPCID [Concomitant]
     Active Substance: FAMOTIDINE
  12. NASONEX [Concomitant]
     Active Substance: MOMETASONE FUROATE
  13. MULTIVITAMIN [Concomitant]
     Active Substance: VITAMINS
  14. METOPROLOL. [Concomitant]
     Active Substance: METOPROLOL
  15. CHLORATHALIDONE [Concomitant]
     Active Substance: CHLORTHALIDONE
  16. COQU110 [Concomitant]

REACTIONS (1)
  - Suicidal ideation [None]

NARRATIVE: CASE EVENT DATE: 20200910
